FAERS Safety Report 4349491-5 (Version None)
Quarter: 2004Q2

REPORT INFORMATION
  Report Type: 
  Country: None (occurrence: None)
  Receive Date: 20040426
  Receipt Date: 20040412
  Transmission Date: 20050107
  Serious: Yes (Other)
  Sender: FDA-Public Use
  Company Number: 205489

PATIENT
  Age: 58 Year
  Sex: Female

DRUGS (24)
  1. HERCEPTIN [Suspect]
     Indication: BREAST CANCER
     Dosage: SEE IMAGE
     Route: 042
     Dates: start: 20031211, end: 20031211
  2. HERCEPTIN [Suspect]
     Indication: BREAST CANCER
     Dosage: SEE IMAGE
     Route: 042
     Dates: end: 20040305
  3. TAXOTERE [Suspect]
     Indication: BREAST CANCER
     Dosage: 132 MG, Q3W, INTRAVENOUS
     Route: 042
     Dates: start: 20031212
  4. CARBOPLATIN [Suspect]
     Indication: BREAST CANCER
     Dosage: 672 MG, Q3W, INTRAVENOUS
     Route: 042
     Dates: start: 20031212
  5. LIPITOR [Concomitant]
  6. MULTI-VITAMINS [Concomitant]
  7. GLUCOSAMINE [Concomitant]
  8. COMPAZINE [Concomitant]
  9. ATIVAN [Concomitant]
  10. AMBIEN (ZOLIPIDEM TARTRATE) [Concomitant]
  11. SONATA [Concomitant]
  12. ELAVIL [Concomitant]
  13. LEVAQUIN [Concomitant]
  14. MORPHINE [Concomitant]
  15. ZANTAC [Concomitant]
  16. TYLENOL #1 (UNITED STATES) (CODEINE PHOSPHATE, ACETAMINOPHEN) [Concomitant]
  17. BENADRYL [Concomitant]
  18. DECADRON [Concomitant]
  19. ANZEMET [Concomitant]
  20. KYTRIL [Concomitant]
  21. SCOPOLAMINE (SCOPOLAMINE NOS) [Concomitant]
  22. SODIUM CHLORIDE [Concomitant]
  23. EMEND [Concomitant]
  24. NEXIUM (ESOMEPRAZOEL MAGNESIUM) [Concomitant]

REACTIONS (2)
  - EJECTION FRACTION DECREASED [None]
  - PULMONARY EMBOLISM [None]
